FAERS Safety Report 21035558 (Version 1)
Quarter: 2022Q3

REPORT INFORMATION
  Report Type: Spontaneous
  Country: US (occurrence: US)
  Receive Date: 20220701
  Receipt Date: 20220701
  Transmission Date: 20221026
  Serious: Yes (Other)
  Sender: FDA-Public Use
  Company Number: US-PFIZER INC-202200912980

PATIENT
  Age: 33 Year
  Sex: Male

DRUGS (3)
  1. GABAPENTIN [Suspect]
     Active Substance: GABAPENTIN
     Dosage: UNK
  2. DEPAKOTE [Concomitant]
     Active Substance: DIVALPROEX SODIUM
  3. ZYPREXA [Concomitant]
     Active Substance: OLANZAPINE

REACTIONS (4)
  - Suicidal ideation [Unknown]
  - Haematochezia [Unknown]
  - Mental disorder [Unknown]
  - Paraesthesia [Unknown]
